FAERS Safety Report 6520294-6 (Version None)
Quarter: 2009Q4

REPORT INFORMATION
  Report Type: 
  Country: None (occurrence: None)
  Receive Date: 20091229
  Receipt Date: 20091223
  Transmission Date: 20100525
  Serious: Yes (Other)
  Sender: FDA-Public Use
  Company Number: GB-BAXTER-2009BH019742

PATIENT
  Age: 4 Year
  Sex: Male
  Weight: 17 kg

DRUGS (2)
  1. ADVATE [Suspect]
     Indication: FACTOR VIII DEFICIENCY
     Route: 048
     Dates: start: 20091207
  2. SYTRON [Concomitant]

REACTIONS (4)
  - ABDOMINAL PAIN [None]
  - HYPOTONIA [None]
  - PALLOR [None]
  - PETECHIAE [None]
